FAERS Safety Report 16996242 (Version 1)
Quarter: 2019Q4

REPORT INFORMATION
  Report Type: Spontaneous
  Country: PL (occurrence: PL)
  Receive Date: 20191105
  Receipt Date: 20191105
  Transmission Date: 20200122
  Serious: Yes (Hospitalization)
  Sender: FDA-Public Use
  Company Number: PL-SAMSUNG BIOEPIS-SB-2019-31739

PATIENT
  Age: 22 Year
  Sex: Female
  Weight: 55 kg

DRUGS (1)
  1. FLIXABI [Suspect]
     Active Substance: INFLIXIMAB
     Indication: CROHN^S DISEASE
     Dosage: SECOND DOSE OF DRUG
     Route: 042
     Dates: start: 20181205, end: 20181205

REACTIONS (4)
  - Abdominal pain [Recovered/Resolved]
  - Respiration abnormal [Recovered/Resolved]
  - Cyanosis [Recovered/Resolved]
  - Erythema [Recovered/Resolved]

NARRATIVE: CASE EVENT DATE: 20181205
